FAERS Safety Report 9830475 (Version 1)
Quarter: 2014Q1

REPORT INFORMATION
  Report Type: Spontaneous
  Country: US (occurrence: US)
  Receive Date: 20140120
  Receipt Date: 20140120
  Transmission Date: 20141002
  Serious: Yes (Hospitalization)
  Sender: FDA-Public Use
  Company Number: US-GLAXOSMITHKLINE-A1056388A

PATIENT
  Age: 28 Year
  Sex: Male

DRUGS (1)
  1. ARIXTRA [Suspect]
     Indication: THROMBOSIS PROPHYLAXIS
     Dosage: 2.5MG PER DAY
     Route: 058
     Dates: start: 20131228

REACTIONS (1)
  - Medical device removal [Unknown]
